FAERS Safety Report 7503061-6 (Version None)
Quarter: 2011Q2

REPORT INFORMATION
  Report Type: 
  Country: None (occurrence: None)
  Receive Date: 20110520
  Receipt Date: 20110520
  Transmission Date: 20111010
  Serious: Yes (Other)
  Sender: FDA-Public Use
  Company Number: None

PATIENT
  Age: 54 Year
  Sex: Female
  Weight: 95.2554 kg

DRUGS (1)
  1. ZOLPIDEM [Suspect]
     Indication: INSOMNIA
     Dosage: 10MG 1 X NIGHT 047
     Dates: start: 20090901, end: 20100505

REACTIONS (3)
  - SLEEP-RELATED EATING DISORDER [None]
  - SOMNAMBULISM [None]
  - AMNESIA [None]
